FAERS Safety Report 7275175-X (Version None)
Quarter: 2011Q1

REPORT INFORMATION
  Report Type: 
  Country: None (occurrence: None)
  Receive Date: 20110204
  Receipt Date: 20110203
  Transmission Date: 20110831
  Serious: Yes (Death)
  Sender: FDA-Public Use
  Company Number: IT-SHIRE-SPV1-2011-00185

PATIENT
  Age: 57 Year
  Sex: Male

DRUGS (5)
  1. XAGRID [Suspect]
     Dosage: UNK UNK, UNKNOWN
     Route: 048
     Dates: start: 20040501
  2. ONCO CARBIDE [Concomitant]
     Indication: MYELOFIBROSIS
     Dosage: UNK
     Dates: start: 19960101
  3. XAGRID [Suspect]
     Indication: MYELOFIBROSIS
     Dosage: 1 MG, 2X/DAY:BID
     Route: 048
  4. ONCO CARBIDE [Concomitant]
     Indication: ESSENTIAL THROMBOCYTHAEMIA
     Dosage: TWO TABLETS DAILY MON/TUE/WED/THUR/FRI AND 1 TABLET DAILY ON SAT/SUN
     Route: 048
  5. CARDIOASPIRINA [Concomitant]
     Indication: PRODUCT USED FOR UNKNOWN INDICATION
     Dosage: 100 MG, 1X/DAY:QD
     Route: 048
     Dates: start: 20101001

REACTIONS (2)
  - OFF LABEL USE [None]
  - CEREBRAL HAEMORRHAGE [None]
